FAERS Safety Report 13946002 (Version 4)
Quarter: 2018Q4

REPORT INFORMATION
  Report Type: Report from Study
  Country: FR (occurrence: FR)
  Receive Date: 20170907
  Receipt Date: 20181115
  Transmission Date: 20190204
  Serious: Yes (Death, Hospitalization, Other)
  Sender: FDA-Public Use
  Company Number: FR-BRISTOL-MYERS SQUIBB COMPANY-BMS-2017-079784

PATIENT
  Age: 62 Year
  Sex: Male

DRUGS (1)
  1. NIVOLUMAB [Suspect]
     Active Substance: NIVOLUMAB
     Indication: LUNG NEOPLASM MALIGNANT
     Dosage: 3 MG/KG, Q2WK  EVERY 15 DAYS
     Route: 042
     Dates: start: 20170321

REACTIONS (3)
  - Malignant neoplasm progression [Fatal]
  - General physical health deterioration [Fatal]
  - Infection [Fatal]

NARRATIVE: CASE EVENT DATE: 20170505
